FAERS Safety Report 6255655-6 (Version None)
Quarter: 2009Q3

REPORT INFORMATION
  Report Type: 
  Country: None (occurrence: None)
  Receive Date: 20090701
  Receipt Date: 20090609
  Transmission Date: 20100115
  Serious: Yes (Hospitalization)
  Sender: FDA-Public Use
  Company Number: JPI-P-007544

PATIENT
  Age: 67 Year
  Sex: Female

DRUGS (8)
  1. XYREM [Suspect]
     Indication: CATAPLEXY
     Dosage: SEE IMAGE
     Route: 048
     Dates: start: 20090528, end: 20090528
  2. XYREM [Suspect]
     Indication: CATAPLEXY
     Dosage: SEE IMAGE
     Route: 048
     Dates: start: 20021104
  3. XYREM [Suspect]
     Indication: CATAPLEXY
     Dosage: SEE IMAGE
     Route: 048
     Dates: start: 20090311
  4. XYREM [Suspect]
     Indication: CATAPLEXY
     Dosage: SEE IMAGE
     Route: 048
     Dates: start: 20090604
  5. ALPRAZOLAM (PILL) [Concomitant]
  6. DEXTROAMPHETAMINE (PILL) [Concomitant]
  7. FUROSEMIDE (PILL) [Concomitant]
  8. ESOMEPRAZOLE (PILL) [Concomitant]

REACTIONS (7)
  - CONDITION AGGRAVATED [None]
  - DIVERTICULITIS [None]
  - GASTROINTESTINAL OBSTRUCTION [None]
  - HEART RATE INCREASED [None]
  - PAIN [None]
  - SEROMA [None]
  - VOMITING [None]
